FAERS Safety Report 12844211 (Version 1)
Quarter: 2016Q4

REPORT INFORMATION
  Report Type: Spontaneous
  Country: US (occurrence: US)
  Receive Date: 20161013
  Receipt Date: 20161013
  Transmission Date: 20170207
  Serious: No
  Sender: FDA-Public Use
  Company Number: US-ROCHE-1711595

PATIENT
  Age: 61 Year
  Sex: Female

DRUGS (1)
  1. ZELBORAF [Suspect]
     Active Substance: VEMURAFENIB
     Indication: MALIGNANT MELANOMA
     Route: 048
     Dates: start: 20150916

REACTIONS (10)
  - Metastasis [Unknown]
  - Oedema peripheral [Unknown]
  - Temperature intolerance [Unknown]
  - Acne [Unknown]
  - Rash [Unknown]
  - Alopecia [Unknown]
  - Liver function test increased [Recovered/Resolved]
  - Diarrhoea [Unknown]
  - Pain [Unknown]
  - Pain in extremity [Unknown]

NARRATIVE: CASE EVENT DATE: 20160212
